FAERS Safety Report 18751804 (Version 1)
Quarter: 2021Q1

REPORT INFORMATION
  Report Type: Spontaneous
  Country: US (occurrence: US)
  Receive Date: 20210118
  Receipt Date: 20210118
  Transmission Date: 20210419
  Serious: Yes (Other)
  Sender: FDA-Public Use
  Company Number: US-TEVA-2021-US-1868927

PATIENT
  Age: 77 Year
  Sex: Male

DRUGS (7)
  1. LEUCOVORIN. [Suspect]
     Active Substance: LEUCOVORIN
     Dosage: 200 MG/M2 = 378 MG IV ONCE ON DAY 1 IN 250 ML D5W OVER 120 MINUTES
     Route: 065
  2. OXALIPLATIN. [Suspect]
     Active Substance: OXALIPLATIN
     Dosage: 85 MG/M2 = 160 MG IV ONCE ON DAY 1 IN 250 ML D5W OVER 120 MINUTES
     Route: 065
  3. DOCETAXEL. [Suspect]
     Active Substance: DOCETAXEL
     Dosage: IV 50MG/M2 ON DAY 1
     Route: 065
  4. SUCRALFATE. [Concomitant]
     Active Substance: SUCRALFATE
     Dosage: DOSAGE: 1GM
     Dates: start: 20181027
  5. FLUOROURACIL. [Suspect]
     Active Substance: FLUOROURACIL
     Dosage: 2400 MG/M2 CONTINUOUS INFUSION = 4536 MG, INFUSED OVER 46?48 HOURS
     Route: 065
  6. MOMETASONE [Concomitant]
     Active Substance: MOMETASONE
     Dosage: DOSAGE: 01 PERCENT, TOPICAL
     Dates: start: 20181101
  7. OMEPRAZOLE. [Concomitant]
     Active Substance: OMEPRAZOLE
     Dosage: DOSAGE: 40 MG, DELAYED RELEASE
     Dates: start: 20181025

REACTIONS (21)
  - Loss of libido [Unknown]
  - Diarrhoea [Unknown]
  - Vomiting [Not Recovered/Not Resolved]
  - Decreased appetite [Not Recovered/Not Resolved]
  - Nausea [Recovered/Resolved]
  - Taste disorder [Recovered/Resolved]
  - Asthenia [Unknown]
  - Fatigue [Not Recovered/Not Resolved]
  - Weight decreased [Recovering/Resolving]
  - Dehydration [Not Recovered/Not Resolved]
  - Asthenia [Recovering/Resolving]
  - Paraesthesia [Not Recovered/Not Resolved]
  - Cataract [Unknown]
  - Decreased appetite [Recovering/Resolving]
  - Epistaxis [Unknown]
  - Neuropathy peripheral [Not Recovered/Not Resolved]
  - Dizziness [Unknown]
  - Feeling cold [Not Recovered/Not Resolved]
  - Blindness [Unknown]
  - Sensory loss [Unknown]
  - Mucosal inflammation [Recovered/Resolved]
